FAERS Safety Report 8350543-3 (Version None)
Quarter: 2012Q2

REPORT INFORMATION
  Report Type: 
  Country: None (occurrence: None)
  Receive Date: 20120510
  Receipt Date: 20120430
  Transmission Date: 20120825
  Serious: Yes (Death, Hospitalization, Other)
  Sender: FDA-Public Use
  Company Number: CA-GENZYME-CAMP-1001813

PATIENT
  Sex: Male
  Weight: 58 kg

DRUGS (16)
  1. CAMPATH [Suspect]
     Indication: LYMPHOHISTIOCYTOSIS
     Dosage: 30 MG, TIW
     Route: 058
     Dates: start: 20100505, end: 20100619
  2. SULFAMETHOXAZOLE AND TRIMETHOPRIM [Concomitant]
     Indication: INFECTION PROPHYLAXIS
     Dosage: UNK
     Route: 065
  3. ETOPOSIDE [Suspect]
     Indication: LYMPHOHISTIOCYTOSIS
     Dosage: 140 MG, ONCE
     Route: 042
     Dates: start: 20100409, end: 20100409
  4. ETOPOSIDE [Suspect]
     Dosage: 65 MG, ONCE
     Route: 042
     Dates: start: 20100428, end: 20100428
  5. ETOPOSIDE [Suspect]
     Dosage: 65 MG, ONCE
     Route: 042
     Dates: start: 20100423, end: 20100423
  6. FOLIC ACID [Concomitant]
     Indication: PRODUCT USED FOR UNKNOWN INDICATION
     Dosage: UNK
     Route: 065
  7. IRON [Concomitant]
     Indication: PRODUCT USED FOR UNKNOWN INDICATION
     Dosage: UNK
     Route: 065
  8. VANCOMYCIN [Concomitant]
     Indication: ENTEROCOCCAL BACTERAEMIA
     Dosage: UNK
     Route: 065
  9. CYCLOSPORINE [Suspect]
     Indication: LYMPHOHISTIOCYTOSIS
     Dosage: 200 MG, BID
     Route: 048
     Dates: start: 20100409, end: 20100415
  10. ETOPOSIDE [Suspect]
     Dosage: 65 MG, ONCE
     Route: 042
     Dates: start: 20100430, end: 20100430
  11. GANCICLOVIR [Concomitant]
     Indication: ANTIVIRAL PROPHYLAXIS
     Dosage: UNK
     Route: 065
  12. SILDENAFIL [Concomitant]
     Indication: PULMONARY HYPERTENSION
     Dosage: UNK
     Route: 065
  13. CAMPATH [Suspect]
     Dosage: 10 MG, ONCE
     Route: 058
     Dates: start: 20100503, end: 20100503
  14. IMMUNE GLOBULIN NOS [Concomitant]
     Indication: PRODUCT USED FOR UNKNOWN INDICATION
     Dosage: UNK
     Route: 042
  15. LAMIVUDINE (EPIVIR HBV) [Concomitant]
     Indication: ANTIVIRAL PROPHYLAXIS
     Dosage: UNK
     Route: 065
  16. GRANULOCYTE COLONY STIMULATING FACTOR [Concomitant]
     Indication: NEUTROPENIA
     Dosage: UNK
     Route: 065

REACTIONS (7)
  - GASTROINTESTINAL HAEMORRHAGE [None]
  - HISTIOCYTOSIS HAEMATOPHAGIC [None]
  - RESPIRATORY FAILURE [None]
  - DISSEMINATED INTRAVASCULAR COAGULATION [None]
  - SEPSIS [None]
  - ENTEROCOCCAL INFECTION [None]
  - COLITIS EROSIVE [None]
